FAERS Safety Report 18591201 (Version 7)
Quarter: 2021Q2

REPORT INFORMATION
  Report Type: Spontaneous
  Country: ES (occurrence: ES)
  Receive Date: 20201208
  Receipt Date: 20210621
  Transmission Date: 20210717
  Serious: Yes (Hospitalization, Other)
  Sender: FDA-Public Use
  Company Number: ES-MYLANLABS-2020M1099762

PATIENT
  Age: 32 Year
  Sex: Female

DRUGS (9)
  1. HYDROXYCHLOROQUINE [Interacting]
     Active Substance: HYDROXYCHLOROQUINE
     Dosage: 800 MILLIGRAM, QD (400 MILLIGRAM, 2X / DAY (EVERY 12 HOURS, LOADING DOSE ON FIRST DAY)
  2. CEFDITOREN [Suspect]
     Active Substance: CEFDITOREN
     Indication: COVID-19
     Dosage: 400 MILLIGRAM, BID (400 MG EVERY 12 HOURS)
     Route: 065
  3. HYDROXYCHLOROQUINE [Interacting]
     Active Substance: HYDROXYCHLOROQUINE
     Dosage: 200 MILLIGRAM, BID (200 MG EVERY 12 HOURS (FIRST DAY DOSE CHARGE))
     Route: 065
  4. OMEPRAZOLE. [Concomitant]
     Active Substance: OMEPRAZOLE
     Indication: HIATUS HERNIA
     Dosage: 40 MILLIGRAM, QD (20 MG EVERY 12 HOURS)
     Route: 065
  5. AZITHROMYCIN ANHYDROUS. [Suspect]
     Active Substance: AZITHROMYCIN ANHYDROUS
     Indication: COVID-19
     Dosage: 500 MILLIGRAM, QD (500MG EVERY 24 HOURS)
     Route: 065
  6. OMEPRAZOLE. [Suspect]
     Active Substance: OMEPRAZOLE
     Dosage: 20 MILLIGRAM, BID (20MG EVERY 12 HOURS)
     Route: 065
  7. CEFDITOREN [Suspect]
     Active Substance: CEFDITOREN
     Dosage: 800 MILLIGRAM, BID (400 MG EVERY 12 HOURS)
     Route: 065
  8. OMEPRAZOLE. [Suspect]
     Active Substance: OMEPRAZOLE
     Indication: HIATUS HERNIA
     Dosage: 20 MILLIGRAM, BID (20MG EVERY 12 HOURS)
     Route: 065
  9. HYDROXYCHLOROQUINE [Interacting]
     Active Substance: HYDROXYCHLOROQUINE
     Indication: COVID-19
     Dosage: 400 MILLIGRAM, QD (400 MG LOADING DOSE EVERY 12 HOURS ON THE FIRST DAY)
     Route: 065

REACTIONS (8)
  - Cardiac failure [Unknown]
  - Extrasystoles [Recovered/Resolved]
  - Dyspnoea exertional [Unknown]
  - Cardiac failure chronic [Unknown]
  - Tachycardia [Recovered/Resolved]
  - Off label use [Unknown]
  - Mitral valve incompetence [Unknown]
  - Drug interaction [Unknown]
